FAERS Safety Report 6083772-2 (Version None)
Quarter: 2009Q1

REPORT INFORMATION
  Report Type: 
  Country: None (occurrence: None)
  Receive Date: 20090219
  Receipt Date: 20090209
  Transmission Date: 20090719
  Serious: Yes (Life-Threatening)
  Sender: FDA-Public Use
  Company Number: JP-PFIZER INC-2009164461

PATIENT

DRUGS (2)
  1. ATARAX [Suspect]
     Indication: ANXIETY
     Dosage: 50 MG, SINGLE
     Route: 030
     Dates: start: 20090202, end: 20090202
  2. INOVAN [Concomitant]

REACTIONS (1)
  - ATRIAL FLUTTER [None]
